FAERS Safety Report 4982621-0 (Version None)
Quarter: 2006Q2

REPORT INFORMATION
  Report Type: 
  Country: None (occurrence: None)
  Receive Date: 20060419
  Receipt Date: 20060403
  Transmission Date: 20061013
  Serious: Yes (Other)
  Sender: FDA-Public Use
  Company Number: US200604000382

PATIENT
  Sex: Male

DRUGS (2)
  1. EVISTA [Suspect]
     Indication: PROSTATE CANCER
     Dosage: 60 MG, DAILY (1/D), ORAL
     Route: 048
  2. COUMADIN [Concomitant]

REACTIONS (1)
  - HYPERGLYCAEMIA [None]
